FAERS Safety Report 15289794 (Version 2)
Quarter: 2018Q3

REPORT INFORMATION
  Report Type: Spontaneous
  Country: JP (occurrence: JP)
  Receive Date: 20180817
  Receipt Date: 20180821
  Transmission Date: 20181010
  Serious: Yes (Other)
  Sender: FDA-Public Use
  Company Number: JP-PFIZER INC-2018327744

PATIENT
  Age: 76 Year
  Sex: Male

DRUGS (2)
  1. CALCIUM FOLINATE [Suspect]
     Active Substance: LEUCOVORIN CALCIUM
     Indication: COLON CANCER STAGE III
     Dosage: UNK, CYCLIC (2 CYCLES)
  2. TEGAFUR W/URACIL [Suspect]
     Active Substance: TEGAFUR\URACIL
     Indication: COLON CANCER STAGE III
     Dosage: UNK, CYCLIC (2 CYCLES)

REACTIONS (1)
  - Interstitial lung disease [Unknown]
